FAERS Safety Report 23699095 (Version 1)
Quarter: 2024Q2

REPORT INFORMATION
  Report Type: Spontaneous
  Country: US (occurrence: None)
  Receive Date: 20240402
  Receipt Date: 20240402
  Transmission Date: 20240715
  Serious: Yes (Hospitalization)
  Sender: FDA-Public Use
  Company Number: None

PATIENT
  Sex: Male

DRUGS (4)
  1. ERLOTINIB [Suspect]
     Active Substance: ERLOTINIB
     Indication: Cholangiocarcinoma
     Dosage: FREQUENCY : DAILY;?
     Route: 048
     Dates: start: 202312
  2. ERLOTINIB [Suspect]
     Active Substance: ERLOTINIB
     Indication: Metastases to liver
  3. ERLOTINIB [Suspect]
     Active Substance: ERLOTINIB
     Indication: Metastasis
  4. ERLOTINIB [Suspect]
     Active Substance: ERLOTINIB
     Indication: Cholangiocarcinoma

REACTIONS (1)
  - Pyrexia [None]
